FAERS Safety Report 11849309 (Version 1)
Quarter: 2015Q4

REPORT INFORMATION
  Report Type: Spontaneous
  Country: US (occurrence: US)
  Receive Date: 20151218
  Receipt Date: 20151218
  Transmission Date: 20160305
  Serious: No
  Sender: FDA-Public Use
  Company Number: US-FERRINGPH-2015FE03722

PATIENT
  Age: 35 Year
  Sex: Female
  Weight: 50.79 kg

DRUGS (4)
  1. CETROTIDE [Concomitant]
     Active Substance: CETRORELIX ACETATE
  2. MENOPUR [Suspect]
     Active Substance: FOLLICLE STIMULATING HORMONE BETA POLYPEPTIDE\LUTROPIN ALFA
     Indication: INFERTILITY
     Dosage: UNK, DAILY
     Route: 058
     Dates: start: 20151001, end: 20151014
  3. FOLLISTIM [Concomitant]
     Active Substance: FOLLITROPIN
  4. PLAQUENIL [Concomitant]
     Active Substance: HYDROXYCHLOROQUINE SULFATE

REACTIONS (1)
  - Contusion [Not Recovered/Not Resolved]

NARRATIVE: CASE EVENT DATE: 20151001
